FAERS Safety Report 22657395 (Version 2)
Quarter: 2023Q4

REPORT INFORMATION
  Report Type: Report from Study
  Country: PA (occurrence: PA)
  Receive Date: 20230630
  Receipt Date: 20231003
  Transmission Date: 20240110
  Serious: Yes (Hospitalization, Other)
  Sender: FDA-Public Use
  Company Number: PA-002147023-NVSC2023PA147895

PATIENT
  Age: 60 Year
  Sex: Female

DRUGS (2)
  1. KISQALI [Suspect]
     Active Substance: RIBOCICLIB
     Indication: Breast cancer metastatic
     Dosage: 600 MG, QD
     Route: 048
     Dates: start: 202304
  2. FULVESTRANT [Suspect]
     Active Substance: FULVESTRANT
     Indication: Product used for unknown indication
     Dosage: UNK
     Route: 065

REACTIONS (13)
  - Pulmonary oedema [Unknown]
  - Metastases to lung [Unknown]
  - Metastases to chest wall [Unknown]
  - Discomfort [Unknown]
  - Full blood count decreased [Unknown]
  - Rash pruritic [Unknown]
  - Neuralgia [Unknown]
  - Cough [Unknown]
  - Pain [Unknown]
  - Muscle spasms [Unknown]
  - Productive cough [Unknown]
  - Inflammation [Unknown]
  - Vein disorder [Unknown]

NARRATIVE: CASE EVENT DATE: 20230807
